FAERS Safety Report 6399686-4 (Version None)
Quarter: 2009Q4

REPORT INFORMATION
  Report Type: 
  Country: None (occurrence: None)
  Receive Date: 20091014
  Receipt Date: 20091005
  Transmission Date: 20100525
  Serious: Yes (Other)
  Sender: FDA-Public Use
  Company Number: US-ASTRAZENECA-2009SE17978

PATIENT
  Age: 71 Year
  Sex: Female
  Weight: 58.1 kg

DRUGS (3)
  1. SYMBICORT [Suspect]
     Indication: CHRONIC OBSTRUCTIVE PULMONARY DISEASE
     Dosage: 160/4.5 UG
     Route: 055
     Dates: start: 20090101
  2. SYMBICORT [Suspect]
     Dosage: 80/4.5 UG
     Route: 055
  3. ACYCLOVIR [Concomitant]

REACTIONS (3)
  - DIABETES MELLITUS [None]
  - ORAL PAIN [None]
  - WEIGHT DECREASED [None]
